FAERS Safety Report 13993356 (Version 2)
Quarter: 2017Q4

REPORT INFORMATION
  Report Type: Spontaneous
  Country: US (occurrence: US)
  Receive Date: 20170920
  Receipt Date: 20171227
  Transmission Date: 20180321
  Serious: Yes (Other)
  Sender: FDA-Public Use
  Company Number: US-BAYER-2017-179486

PATIENT
  Age: 48 Year
  Sex: Female
  Weight: 87.54 kg

DRUGS (2)
  1. MIRENA [Suspect]
     Active Substance: LEVONORGESTREL
  2. MIRENA [Suspect]
     Active Substance: LEVONORGESTREL
     Dosage: 20 MCG/24HR, CONT
     Route: 015
     Dates: start: 20161219, end: 20170831

REACTIONS (3)
  - Embedded device [Recovered/Resolved]
  - Genital haemorrhage [Recovered/Resolved]
  - Menorrhagia [None]

NARRATIVE: CASE EVENT DATE: 20170831
